FAERS Safety Report 8534807-6 (Version None)
Quarter: 2012Q3

REPORT INFORMATION
  Report Type: 
  Country: None (occurrence: None)
  Receive Date: 20120724
  Receipt Date: 20120717
  Transmission Date: 20120928
  Serious: Yes (Other)
  Sender: FDA-Public Use
  Company Number: BE-UCBSA-062151

PATIENT
  Age: 83 Year
  Sex: Male
  Weight: 70 kg

DRUGS (6)
  1. TRAZODONE HCL [Concomitant]
     Dosage: ROUTE-PEG TUBE
  2. KEPPRA [Suspect]
     Dosage: ROUTE-PEG TUBE,
  3. LAMICTAL [Suspect]
     Dosage: ROUTE-PEG TUBE
  4. KEPPRA [Suspect]
     Dosage: ROUTE-PEG TUBE
  5. UNI-DIAMICRON [Concomitant]
     Dosage: ROUTE-PEG TUBE
  6. MARCUMAR [Concomitant]
     Dosage: DOSE INTAKE ACCORDING TO INR, ROUTE-PEG TUBE

REACTIONS (1)
  - HEPATITIS CHOLESTATIC [None]
